FAERS Safety Report 11266553 (Version 5)
Quarter: 2016Q1

REPORT INFORMATION
  Report Type: Report from Study
  Country: BR (occurrence: BR)
  Receive Date: 20150713
  Receipt Date: 20160104
  Transmission Date: 20160525
  Serious: Yes (Hospitalization, Other)
  Sender: FDA-Public Use
  Company Number: PHHY2015BR083271

PATIENT
  Age: 54 Year
  Sex: Female
  Weight: 94 kg

DRUGS (8)
  1. ALPRAZOLAM. [Concomitant]
     Active Substance: ALPRAZOLAM
     Indication: ANXIOLYTIC THERAPY
     Dosage: 2 DF, QD
     Route: 048
     Dates: start: 2011
  2. OMEPRAZOLE. [Concomitant]
     Active Substance: OMEPRAZOLE
     Indication: GASTRIC DISORDER
     Dosage: 2 DF, QD
     Route: 048
     Dates: start: 2012
  3. DOMPERIDONE [Concomitant]
     Active Substance: DOMPERIDONE
     Indication: DYSPEPSIA
     Dosage: 1 DF, QD (IN THE MORNING)
     Route: 048
     Dates: start: 2012
  4. SANDOSTATIN LAR DEPOT [Suspect]
     Active Substance: OCTREOTIDE ACETATE
     Indication: NEUROENDOCRINE TUMOUR
     Dosage: 1 DF, QMO (1 APPLICATION EVERY 28 DAYS)
     Route: 030
     Dates: start: 201502
  5. ARADOIS [Concomitant]
     Active Substance: LOSARTAN POTASSIUM
     Indication: HYPERTENSION
     Dosage: 2 DF, QD
     Route: 048
     Dates: start: 2012
  6. ATENOLOL. [Concomitant]
     Active Substance: ATENOLOL
     Indication: HYPERTENSION
     Dosage: 1 DF, QD
     Route: 048
  7. DEPURA [Concomitant]
     Active Substance: CHOLECALCIFEROL
     Indication: VITAMIN SUPPLEMENTATION
     Dosage: 10 DRP, QD
     Route: 065
  8. VITAMIN D [Concomitant]
     Active Substance: CHOLECALCIFEROL
     Indication: VITAMIN SUPPLEMENTATION
     Dosage: 10 DRP, QD
     Route: 048
     Dates: start: 2014

REACTIONS (16)
  - Hyperhidrosis [Not Recovered/Not Resolved]
  - Fatigue [Not Recovered/Not Resolved]
  - Malaise [Unknown]
  - Alopecia [Not Recovered/Not Resolved]
  - Blood glucose increased [Recovering/Resolving]
  - Diarrhoea [Not Recovered/Not Resolved]
  - Blood triglycerides increased [Recovering/Resolving]
  - Dyspnoea [Recovering/Resolving]
  - Onychoclasis [Not Recovered/Not Resolved]
  - Blood cholesterol increased [Recovering/Resolving]
  - Palpitations [Not Recovered/Not Resolved]
  - Weight increased [Unknown]
  - Blood pressure increased [Unknown]
  - Weight decreased [Recovering/Resolving]
  - Dysphonia [Not Recovered/Not Resolved]
  - Anxiety [Unknown]

NARRATIVE: CASE EVENT DATE: 20150625
